FAERS Safety Report 4386709-7 (Version None)
Quarter: 2004Q2

REPORT INFORMATION
  Report Type: 
  Country: None (occurrence: None)
  Receive Date: 20040607
  Receipt Date: 20030428
  Transmission Date: 20050107
  Serious: Yes (Other)
  Sender: FDA-Public Use
  Company Number: 327008

PATIENT
  Age: 48 Year
  Sex: Female
  Weight: 45.4 kg

DRUGS (1)
  1. ACCUTANE [Suspect]
     Indication: DRUG USE FOR UNKNOWN INDICATION
     Dosage: 40 MG 1 PER DAY ORAL
     Route: 048
     Dates: start: 20021024, end: 20030331

REACTIONS (1)
  - BLOOD GLUCOSE INCREASED [None]
